FAERS Safety Report 12063664 (Version 1)
Quarter: 2016Q1

REPORT INFORMATION
  Report Type: Report from Study
  Country: US (occurrence: US)
  Receive Date: 20160210
  Receipt Date: 20160210
  Transmission Date: 20160526
  Serious: No
  Sender: FDA-Public Use
  Company Number: US-ABBVIE-15P-163-1519482-00

PATIENT
  Sex: Female

DRUGS (3)
  1. HUMIRA [Suspect]
     Active Substance: ADALIMUMAB
     Indication: PSORIASIS
     Route: 050
     Dates: start: 20151116, end: 20151116
  2. HUMIRA [Suspect]
     Active Substance: ADALIMUMAB
     Route: 050
     Dates: start: 20151123, end: 20151123
  3. HUMIRA [Suspect]
     Active Substance: ADALIMUMAB
     Route: 050

REACTIONS (4)
  - Drug prescribing error [Unknown]
  - Asthenia [Not Recovered/Not Resolved]
  - Fatigue [Not Recovered/Not Resolved]
  - Nervousness [Not Recovered/Not Resolved]
